FAERS Safety Report 17165904 (Version 2)
Quarter: 2020Q1

REPORT INFORMATION
  Report Type: Spontaneous
  Country: CH (occurrence: CH)
  Receive Date: 20191217
  Receipt Date: 20200128
  Transmission Date: 20200409
  Serious: Yes (Other)
  Sender: FDA-Public Use
  Company Number: CH-ALLERGAN-1951540US

PATIENT
  Sex: Female

DRUGS (2)
  1. ESCITALOPRAM OXALATE - BP [Suspect]
     Active Substance: ESCITALOPRAM OXALATE
     Indication: EXPOSURE DURING PREGNANCY
     Dosage: 20 MG, QD
     Route: 064
     Dates: start: 20190109, end: 20191010
  2. TEMESTA (LORAZEPAM) [Suspect]
     Active Substance: LORAZEPAM
     Indication: EXPOSURE DURING PREGNANCY
     Dosage: 1 MG, TID
     Route: 064
     Dates: start: 20190109, end: 20191010

REACTIONS (2)
  - Neonatal respiratory distress syndrome [Recovered/Resolved]
  - Foetal exposure during pregnancy [Unknown]

NARRATIVE: CASE EVENT DATE: 20190109
